FAERS Safety Report 19207548 (Version 1)
Quarter: 2021Q2

REPORT INFORMATION
  Report Type: Spontaneous
  Country: US (occurrence: US)
  Receive Date: 20210503
  Receipt Date: 20210503
  Transmission Date: 20210717
  Serious: Yes (Death, Hospitalization, Other)
  Sender: FDA-Public Use
  Company Number: US-ALVOGEN-2021-ALVOGEN-116942

PATIENT
  Age: 46 Year
  Sex: Male

DRUGS (2)
  1. NIVOLUMAB [Suspect]
     Active Substance: NIVOLUMAB
     Indication: METASTASES TO BONE
  2. MELPHALAN. [Suspect]
     Active Substance: MELPHALAN
     Indication: METASTASES TO LIVER
     Dosage: WITH PHP USING HIGH?DOSE MELPHALAN OVER A 6?MONTH

REACTIONS (3)
  - Therapy partial responder [Unknown]
  - Hepatitis [Not Recovered/Not Resolved]
  - Acute hepatic failure [Fatal]
